FAERS Safety Report 6254196-X (Version None)
Quarter: 2009Q3

REPORT INFORMATION
  Report Type: 
  Country: None (occurrence: None)
  Receive Date: 20090702
  Receipt Date: 20090623
  Transmission Date: 20100115
  Serious: Yes (Other)
  Sender: FDA-Public Use
  Company Number: IE-SANOFI-SYNTHELABO-A01200905199

PATIENT
  Sex: Male

DRUGS (1)
  1. ELIGARD [Suspect]
     Dosage: ONCE EVERY 6 MONTHS 45 MG
     Route: 058

REACTIONS (3)
  - HEART RATE DECREASED [None]
  - NAUSEA [None]
  - VOMITING [None]
